FAERS Safety Report 9826125 (Version 1)
Quarter: 2014Q1

REPORT INFORMATION
  Report Type: Spontaneous
  Country: US (occurrence: None)
  Receive Date: 20140116
  Receipt Date: 20140116
  Transmission Date: 20141002
  Serious: Yes (Life-Threatening, Disabling, Other)
  Sender: FDA-Public Use
  Company Number: None

PATIENT
  Age: 41 Year
  Sex: Female
  Weight: 122.93 kg

DRUGS (4)
  1. ONDANSETRON [Suspect]
     Indication: VIRAL INFECTION
     Dosage: 1 PILL, TAKEN UNDER THE TONGUE
     Dates: start: 20140114, end: 20140115
  2. ONDANSETRON [Suspect]
     Indication: NAUSEA
     Dosage: 1 PILL, TAKEN UNDER THE TONGUE
     Dates: start: 20140114, end: 20140115
  3. ONDANSETRON [Suspect]
     Indication: VOMITING
     Dosage: 1 PILL, TAKEN UNDER THE TONGUE
     Dates: start: 20140114, end: 20140115
  4. IBUPROFEN [Concomitant]

REACTIONS (2)
  - Bipolar I disorder [None]
  - Suicidal ideation [None]
